FAERS Safety Report 25387681 (Version 4)
Quarter: 2025Q3

REPORT INFORMATION
  Report Type: Spontaneous
  Country: EU (occurrence: EU)
  Receive Date: 20250603
  Receipt Date: 20250715
  Transmission Date: 20251021
  Serious: Yes (Other)
  Sender: ABBVIE
  Company Number: EU-ABBOTT-2025A-1399612

PATIENT
  Sex: Male

DRUGS (1)
  1. PANCRELIPASE [Suspect]
     Active Substance: PANCRELIPASE
     Indication: Pancreatectomy
     Route: 048

REACTIONS (3)
  - Ileostomy [Unknown]
  - Small intestinal resection [Unknown]
  - Neoplasm malignant [Unknown]
